FAERS Safety Report 7422959-0 (Version None)
Quarter: 2011Q2

REPORT INFORMATION
  Report Type: 
  Country: None (occurrence: None)
  Receive Date: 20110419
  Receipt Date: 20110406
  Transmission Date: 20111010
  Serious: Yes (Other)
  Sender: FDA-Public Use
  Company Number: US-AMGEN-USASP2011018322

PATIENT
  Age: 15 Year
  Sex: Male

DRUGS (2)
  1. ENBREL [Suspect]
     Indication: OSTEOMYELITIS CHRONIC
     Dosage: 50 MG, QWK
     Dates: start: 20090401
  2. ENBREL [Suspect]
     Dates: start: 20090401

REACTIONS (5)
  - DYSPNOEA [None]
  - FEELING COLD [None]
  - MYALGIA [None]
  - ARTHRALGIA [None]
  - DYSKINESIA [None]
